FAERS Safety Report 4356412-8 (Version None)
Quarter: 2004Q2

REPORT INFORMATION
  Report Type: 
  Country: None (occurrence: None)
  Receive Date: 20040506
  Receipt Date: 20040420
  Transmission Date: 20050107
  Serious: Yes (Hospitalization)
  Sender: FDA-Public Use
  Company Number: 131003

PATIENT
  Age: 57 Year
  Sex: Female
  Weight: 81.6475 kg

DRUGS (4)
  1. AVONEX [Suspect]
     Indication: MULTIPLE SCLEROSIS
     Dosage: 30 MCG QW IM
     Route: 030
     Dates: start: 19960901, end: 20040401
  2. DESYREL [Concomitant]
  3. MEDICATION (NOS) [Concomitant]
  4. PAXIL [Concomitant]

REACTIONS (3)
  - ARTHRITIS [None]
  - CONDITION AGGRAVATED [None]
  - PYREXIA [None]
